APPROVED DRUG PRODUCT: NEVIRAPINE
Active Ingredient: NEVIRAPINE
Strength: 50MG/5ML
Dosage Form/Route: SUSPENSION;ORAL
Application: A207684 | Product #001 | TE Code: AA
Applicant: CIPLA LTD
Approved: Aug 3, 2017 | RLD: No | RS: No | Type: RX